FAERS Safety Report 24659038 (Version 4)
Quarter: 2025Q4

REPORT INFORMATION
  Report Type: Report from Study
  Country: CA (occurrence: CA)
  Receive Date: 20241125
  Receipt Date: 20251226
  Transmission Date: 20260118
  Serious: Yes (Death, Hospitalization, Other)
  Sender: BAUSCH AND LOMB
  Company Number: CA-BAUSCH-BL-2023-015885

PATIENT
  Age: 72 Year
  Sex: Female

DRUGS (2)
  1. SILIQ [Suspect]
     Active Substance: BRODALUMAB
     Indication: Psoriasis
     Dosage: 210MG/1.5ML, WEEKLY WEEK 0 (06/OCT/2023), WEEK 1 (13/OCT/2023) AND WEEK 2 (20/OCT/2023)
     Route: 058
     Dates: start: 20231006, end: 20231020
  2. SILIQ [Suspect]
     Active Substance: BRODALUMAB
     Dosage: 210MG/1.5ML, Q2 WEEKS
     Route: 058
     Dates: start: 202311, end: 202511

REACTIONS (7)
  - Death [Fatal]
  - Abdominal pain lower [Not Recovered/Not Resolved]
  - Obstruction gastric [Recovered/Resolved]
  - Chronic obstructive pulmonary disease [Recovered/Resolved]
  - Pleural effusion [Recovered/Resolved]
  - Oropharyngeal pain [Recovered/Resolved]
  - Needle issue [Unknown]

NARRATIVE: CASE EVENT DATE: 20231001
